FAERS Safety Report 9466846 (Version 2)
Quarter: 2013Q3

REPORT INFORMATION
  Report Type: Spontaneous
  Country: US (occurrence: US)
  Receive Date: 20130820
  Receipt Date: 20130820
  Transmission Date: 20140515
  Serious: Yes (Hospitalization, Disabling, Other)
  Sender: FDA-Public Use
  Company Number: US-009507513-1205USA04976

PATIENT
  Sex: Female
  Weight: 78.46 kg

DRUGS (3)
  1. FOSAMAX [Suspect]
     Indication: OSTEOPOROSIS
     Dosage: 70 UNK, UNK
     Route: 048
     Dates: start: 200210, end: 201104
  2. FOSAMAX [Suspect]
     Indication: RHEUMATOID ARTHRITIS
     Dosage: 10 MG, UNK
     Route: 048
     Dates: end: 20110719
  3. CALCIUM (UNSPECIFIED) (+) VITAMIN D (UNSPECIFIED) [Concomitant]

REACTIONS (63)
  - Femur fracture [Unknown]
  - Intramedullary rod insertion [Recovering/Resolving]
  - Femur fracture [Unknown]
  - Open reduction of fracture [Recovered/Resolved]
  - Low turnover osteopathy [Unknown]
  - Osteoporosis [Unknown]
  - Pneumonia [Unknown]
  - Myocardial infarction [Unknown]
  - Mastectomy [Unknown]
  - Surgery [Unknown]
  - Surgery [Unknown]
  - Hip fracture [Unknown]
  - Hip arthroplasty [Unknown]
  - Stress fracture [Unknown]
  - Osteonecrosis [Unknown]
  - Spinal fracture [Unknown]
  - Urinary tract infection [Unknown]
  - Knee operation [Unknown]
  - Hypovolaemic shock [Recovered/Resolved]
  - Oedema peripheral [Unknown]
  - Haemorrhagic anaemia [Recovered/Resolved]
  - Blood pressure abnormal [Unknown]
  - Knee operation [Unknown]
  - Constipation [Unknown]
  - Impaired healing [Unknown]
  - Ulna fracture [Unknown]
  - Urinary tract infection [Not Recovered/Not Resolved]
  - Fall [Unknown]
  - Impaired healing [Unknown]
  - Toe operation [Unknown]
  - Carpal tunnel syndrome [Unknown]
  - Chronic obstructive pulmonary disease [Not Recovered/Not Resolved]
  - Coronary artery disease [Not Recovered/Not Resolved]
  - Eye operation [Unknown]
  - Chest pain [Unknown]
  - Wrist fracture [Not Recovered/Not Resolved]
  - Osteopenia [Not Recovered/Not Resolved]
  - Spinal column stenosis [Not Recovered/Not Resolved]
  - Spinal osteoarthritis [Not Recovered/Not Resolved]
  - Peptic ulcer [Not Recovered/Not Resolved]
  - Dry mouth [Unknown]
  - Tinnitus [Unknown]
  - Depression [Unknown]
  - Eye pain [Unknown]
  - Ocular hyperaemia [Unknown]
  - Vision blurred [Unknown]
  - Pollakiuria [Unknown]
  - Pulmonary mass [Unknown]
  - Synovitis [Unknown]
  - Pneumonia [Unknown]
  - Synovitis [Unknown]
  - Medical device removal [Unknown]
  - Bladder operation [Unknown]
  - Medical device change [Recovered/Resolved]
  - Fatigue [Unknown]
  - Asthenia [Unknown]
  - Insomnia [Unknown]
  - Nausea [Unknown]
  - Diarrhoea [Unknown]
  - Headache [Unknown]
  - Gastrooesophageal reflux disease [Not Recovered/Not Resolved]
  - Off label use [Unknown]
  - Treatment failure [Unknown]
